FAERS Safety Report 4382516-X (Version None)
Quarter: 2004Q2

REPORT INFORMATION
  Report Type: 
  Country: None (occurrence: None)
  Receive Date: 20040617
  Receipt Date: 20040604
  Transmission Date: 20050107
  Serious: Yes (Other)
  Sender: FDA-Public Use
  Company Number: 2004037879

PATIENT

DRUGS (2)
  1. ATARAX [Suspect]
     Indication: PREMEDICATION
     Dosage: ORAL
     Route: 048
     Dates: start: 20040603
  2. CHLORAL HYDRATE       (CHLORAL HYDRATE) [Suspect]
     Indication: PREMEDICATION
     Dosage: ORAL
     Route: 048
     Dates: start: 20040603

REACTIONS (3)
  - ASTHMA [None]
  - DRUG ERUPTION [None]
  - SHOCK [None]
